FAERS Safety Report 4712020-8 (Version None)
Quarter: 2005Q2

REPORT INFORMATION
  Report Type: 
  Country: None (occurrence: None)
  Receive Date: 20050629
  Receipt Date: 20050411
  Transmission Date: 20051028
  Serious: No
  Sender: FDA-Public Use
  Company Number: 05P-163-0297113-00

PATIENT
  Age: 52 Year
  Sex: Female
  Weight: 87.9978 kg

DRUGS (11)
  1. HUMIRA [Suspect]
     Indication: RHEUMATOID ARTHRITIS
     Dosage: SEE IMAGE
     Route: 058
     Dates: start: 20041001, end: 20041101
  2. HUMIRA [Suspect]
     Indication: RHEUMATOID ARTHRITIS
     Dosage: SEE IMAGE
     Route: 058
     Dates: start: 20041101
  3. PREDNISONE [Concomitant]
  4. MULTI-VITAMINS [Concomitant]
  5. AMITRIPTYLINE HCL [Concomitant]
  6. METHOTREXATE [Concomitant]
  7. FOLIC ACID [Concomitant]
  8. PROVELLA-14 [Concomitant]
  9. LEVOTHYROXINE SODIUM [Concomitant]
  10. DILTIAZEM HYDROCHLORIDE [Concomitant]
  11. BENAZEPRIL HYDROCHLORIDE [Concomitant]

REACTIONS (2)
  - ARTHRALGIA [None]
  - PRURITUS [None]
